FAERS Safety Report 6253987-9 (Version None)
Quarter: 2009Q3

REPORT INFORMATION
  Report Type: 
  Country: None (occurrence: None)
  Receive Date: 20090702
  Receipt Date: 20090623
  Transmission Date: 20100115
  Serious: Yes (Other)
  Sender: FDA-Public Use
  Company Number: FR-JNJFOC-20090204196

PATIENT
  Sex: Male
  Weight: 54 kg

DRUGS (5)
  1. RISPERDAL [Suspect]
     Indication: AFFECTIVE DISORDER
     Route: 048
  2. ATARAX [Concomitant]
     Indication: ANXIETY
     Route: 048
  3. TERCIAN [Concomitant]
     Indication: ANXIETY
     Route: 048
  4. DEPAKOTE [Concomitant]
     Indication: THYMUS DISORDER
     Route: 065
  5. LEPTICUR [Concomitant]
     Indication: EXTRAPYRAMIDAL DISORDER
     Route: 065

REACTIONS (3)
  - ABNORMAL BEHAVIOUR [None]
  - DRUG INEFFECTIVE [None]
  - OFF LABEL USE [None]
